FAERS Safety Report 18706624 (Version 1)
Quarter: 2021Q1

REPORT INFORMATION
  Report Type: Spontaneous
  Country: US (occurrence: US)
  Receive Date: 20210106
  Receipt Date: 20210106
  Transmission Date: 20210419
  Serious: No
  Sender: FDA-Public Use
  Company Number: None

PATIENT
  Age: 40 Year
  Sex: Female

DRUGS (3)
  1. IBRANCE [Suspect]
     Active Substance: PALBOCICLIB
     Indication: BREAST CANCER
     Route: 048
     Dates: start: 20201113
  2. LETROZOLE 2.5MG [Concomitant]
     Active Substance: LETROZOLE
     Dates: start: 20201116
  3. GABAPENTIN. [Concomitant]
     Active Substance: GABAPENTIN
     Dates: start: 20201116

REACTIONS (4)
  - Diarrhoea [None]
  - Defaecation urgency [None]
  - Fatigue [None]
  - Urine odour abnormal [None]

NARRATIVE: CASE EVENT DATE: 20201116
